FAERS Safety Report 24765070 (Version 1)
Quarter: 2024Q4

REPORT INFORMATION
  Report Type: Report from Study
  Country: US (occurrence: US)
  Receive Date: 20241223
  Receipt Date: 20241223
  Transmission Date: 20250115
  Serious: Yes (Other)
  Sender: SANDOZ
  Company Number: US-SANDOZ-SDZ2024US100504

PATIENT
  Sex: Male

DRUGS (1)
  1. OMNITROPE [Suspect]
     Active Substance: SOMATROPIN
     Indication: Short stature
     Dosage: 0.7 MG, QD
     Route: 058
     Dates: start: 20241101

REACTIONS (3)
  - Tonsillar disorder [Not Recovered/Not Resolved]
  - Surgery [Unknown]
  - Therapy interrupted [Unknown]
